FAERS Safety Report 12471422 (Version 1)
Quarter: 2016Q2

REPORT INFORMATION
  Report Type: Spontaneous
  Country: BR (occurrence: BR)
  Receive Date: 20160616
  Receipt Date: 20160616
  Transmission Date: 20160815
  Serious: Yes (Hospitalization)
  Sender: FDA-Public Use
  Company Number: BR-ASTELLAS-2016US022998

PATIENT
  Age: 27 Year
  Sex: Female

DRUGS (4)
  1. TAXOL [Suspect]
     Active Substance: PACLITAXEL
     Indication: CERVIX CARCINOMA
     Dosage: UNK, UNKNOWN FREQ.
     Route: 065
  2. TARCEVA [Suspect]
     Active Substance: ERLOTINIB HYDROCHLORIDE
     Indication: CERVIX CARCINOMA
     Dosage: UNK, UNKNOWN FREQ.
     Route: 065
  3. CARBOPLATIN. [Suspect]
     Active Substance: CARBOPLATIN
     Indication: CERVIX CARCINOMA
     Dosage: UNK, UNKNOWN FREQ.
     Route: 065
  4. AVASTIN [Suspect]
     Active Substance: BEVACIZUMAB
     Indication: CERVIX CARCINOMA
     Dosage: UNK, UNKNOWN FREQ.
     Route: 065

REACTIONS (5)
  - Infection [Recovered/Resolved]
  - Dyspnoea [Recovered/Resolved]
  - Vaginal haemorrhage [Recovered/Resolved]
  - Infusion site pain [Recovered/Resolved]
  - Pelvic pain [Recovered/Resolved]
